FAERS Safety Report 9255674 (Version 2)
Quarter: 2013Q2

REPORT INFORMATION
  Report Type: Spontaneous
  Country: BR (occurrence: BR)
  Receive Date: 20130425
  Receipt Date: 20130503
  Transmission Date: 20140414
  Serious: Yes (Other)
  Sender: FDA-Public Use
  Company Number: PHHY2013BR039577

PATIENT
  Age: 59 Year
  Sex: Male
  Weight: 114 kg

DRUGS (2)
  1. DOXAZOSIN MESYLATE [Suspect]
     Indication: PROSTATOMEGALY
     Dosage: 1 DF, QD, IN THE MORNING
     Route: 048
     Dates: start: 20130319, end: 20130415
  2. DOXAZOSIN MESYLATE [Suspect]
     Dosage: 1 DF, AFTER BREAK FAST
     Route: 048

REACTIONS (4)
  - Skin burning sensation [Recovered/Resolved]
  - Semen analysis abnormal [Recovered/Resolved]
  - Syncope [Recovered/Resolved]
  - Pollakiuria [Recovered/Resolved]
